FAERS Safety Report 4324928-6 (Version None)
Quarter: 2004Q1

REPORT INFORMATION
  Report Type: 
  Country: None (occurrence: None)
  Receive Date: 20040323
  Receipt Date: 20040211
  Transmission Date: 20041129
  Serious: No
  Sender: FDA-Public Use
  Company Number: M04-341-039

PATIENT
  Age: 69 Year
  Sex: Male
  Weight: 72 kg

DRUGS (2)
  1. VELCADE [Suspect]
     Indication: MULTIPLE MYELOMA
     Dosage: 1.0 MG/M2 BIW: INTRAVENOUS (NOT OTHEWISE SPECIFIED)
     Route: 042
     Dates: start: 20031223, end: 20040113
  2. DEXAMETHASONE [Concomitant]

REACTIONS (3)
  - BLOOD IMMUNOGLOBULIN G INCREASED [None]
  - CONDITION AGGRAVATED [None]
  - NEUROPATHY PERIPHERAL [None]
